FAERS Safety Report 18751292 (Version 2)
Quarter: 2021Q4

REPORT INFORMATION
  Report Type: Spontaneous
  Country: US (occurrence: US)
  Receive Date: 20210118
  Receipt Date: 20211221
  Transmission Date: 20220303
  Serious: No
  Sender: FDA-Public Use
  Company Number: US-GLAXOSMITHKLINE-US2021009766

PATIENT
  Age: 62 Year
  Sex: Male

DRUGS (1)
  1. NICODERM CQ [Suspect]
     Active Substance: NICOTINE
     Indication: Smoking cessation therapy
     Dosage: UNK
     Dates: end: 202101

REACTIONS (8)
  - Abnormal dreams [Unknown]
  - Cough [Unknown]
  - Application site erythema [Unknown]
  - Application site inflammation [Unknown]
  - Pruritus [Not Recovered/Not Resolved]
  - Application site burn [Unknown]
  - Dry skin [Not Recovered/Not Resolved]
  - Product complaint [Unknown]
